FAERS Safety Report 6382683-2 (Version None)
Quarter: 2009Q3

REPORT INFORMATION
  Report Type: 
  Country: None (occurrence: None)
  Receive Date: 20090928
  Receipt Date: 20090928
  Transmission Date: 20100115
  Serious: Yes (Other)
  Sender: FDA-Public Use
  Company Number: None

PATIENT
  Age: 16 Year
  Sex: Male
  Weight: 78.7 kg

DRUGS (1)
  1. ISOTRETINOIN [Suspect]
     Indication: ACNE CYSTIC
     Dosage: 40MG TWICE DAILY PO
     Route: 048
     Dates: start: 20071104, end: 20080420

REACTIONS (6)
  - AFFECTIVE DISORDER [None]
  - COLITIS ULCERATIVE [None]
  - DIARRHOEA HAEMORRHAGIC [None]
  - DRY SKIN [None]
  - NAUSEA [None]
  - WEIGHT DECREASED [None]
